FAERS Safety Report 10955426 (Version 2)
Quarter: 2015Q2

REPORT INFORMATION
  Report Type: Spontaneous
  Country: US (occurrence: US)
  Receive Date: 20150326
  Receipt Date: 20150514
  Transmission Date: 20150821
  Serious: Yes (Hospitalization, Other)
  Sender: FDA-Public Use
  Company Number: US-009507513-1503USA010604

PATIENT
  Age: 22 Year
  Sex: Female
  Weight: 88.44 kg

DRUGS (2)
  1. NEXPLANON [Suspect]
     Active Substance: ETONOGESTREL
     Indication: CONTRACEPTION
     Dosage: 1 ROD, INSERTED EVERY THREE
     Route: 059
     Dates: start: 20150211, end: 20150423
  2. IMPLANON [Concomitant]
     Active Substance: ETONOGESTREL
     Indication: CONTRACEPTION
     Dosage: UNK
     Route: 059
     Dates: start: 201202, end: 20150211

REACTIONS (3)
  - Implant site cellulitis [Recovered/Resolved]
  - Surgery [Recovered/Resolved]
  - Implant site abscess [Recovered/Resolved]

NARRATIVE: CASE EVENT DATE: 2015
